FAERS Safety Report 6186291-8 (Version None)
Quarter: 2009Q2

REPORT INFORMATION
  Report Type: 
  Country: None (occurrence: None)
  Receive Date: 20090507
  Receipt Date: 20090507
  Transmission Date: 20091009
  Serious: Yes (Other)
  Sender: FDA-Public Use
  Company Number: None

PATIENT
  Age: 59 Year
  Sex: Female
  Weight: 57.6068 kg

DRUGS (1)
  1. FOSAMAX [Suspect]
     Indication: OSTEOPOROSIS
     Dosage: ONE TABLET WEEKLY BUCCAL
     Route: 002
     Dates: start: 20050905, end: 20070905

REACTIONS (2)
  - CELLULITIS ORBITAL [None]
  - CONJUNCTIVITIS [None]
